FAERS Safety Report 5618247-5 (Version None)
Quarter: 2008Q1

REPORT INFORMATION
  Report Type: 
  Country: None (occurrence: None)
  Receive Date: 20080206
  Receipt Date: 20080206
  Transmission Date: 20080703
  Serious: Yes (Death, Hospitalization)
  Sender: FDA-Public Use
  Company Number: None

PATIENT
  Age: 66 Year
  Sex: Female
  Weight: 50.8029 kg

DRUGS (2)
  1. TETRACYCLINE [Suspect]
     Indication: PNEUMONIA
     Dosage: 1 TABLET  4 TIMES A DAY  OTHER
     Route: 048
     Dates: start: 20071028, end: 20071119
  2. TETRACYCLINE [Suspect]
     Indication: PYREXIA
     Dosage: 1 TABLET  4 TIMES A DAY  OTHER
     Route: 048
     Dates: start: 20071028, end: 20071119

REACTIONS (15)
  - ANOREXIA [None]
  - BLISTER [None]
  - DRUG HYPERSENSITIVITY [None]
  - DRY SKIN [None]
  - DYSPHAGIA [None]
  - DYSPNOEA [None]
  - HEART RATE INCREASED [None]
  - JOINT SWELLING [None]
  - LOCAL SWELLING [None]
  - MALAISE [None]
  - NAUSEA [None]
  - RASH ERYTHEMATOUS [None]
  - SKIN EXFOLIATION [None]
  - VOMITING [None]
  - YELLOW SKIN [None]
